FAERS Safety Report 17106965 (Version 1)
Quarter: 2019Q4

REPORT INFORMATION
  Report Type: Spontaneous
  Country: US (occurrence: US)
  Receive Date: 20191203
  Receipt Date: 20191203
  Transmission Date: 20200122
  Serious: No
  Sender: FDA-Public Use
  Company Number: US-PFIZER INC-2019517204

PATIENT
  Age: 6 Decade
  Sex: Female

DRUGS (3)
  1. XELJANZ XR [Suspect]
     Active Substance: TOFACITINIB CITRATE
     Dosage: 11 MG, DAILY
  2. APREMILAST [Suspect]
     Active Substance: APREMILAST
     Dosage: UNK
  3. XELJANZ XR [Suspect]
     Active Substance: TOFACITINIB CITRATE
     Dosage: 11 MG, 2X/DAY (BID) [TWICE DAILY]

REACTIONS (4)
  - Drug ineffective [Unknown]
  - Therapeutic response unexpected [Unknown]
  - Intentional product use issue [Unknown]
  - Pre-existing condition improved [Unknown]
